FAERS Safety Report 9129309 (Version 1)
Quarter: 2013Q1

REPORT INFORMATION
  Report Type: Spontaneous
  Country: US (occurrence: US)
  Receive Date: 20130228
  Receipt Date: 20130228
  Transmission Date: 20140127
  Serious: No
  Sender: FDA-Public Use
  Company Number: US-ABBOTT-13P-163-1042013-00

PATIENT
  Age: 75 Year
  Sex: Male
  Weight: 93.07 kg

DRUGS (4)
  1. ANDROGEL [Suspect]
     Indication: BLOOD TESTOSTERONE DECREASED
     Dosage: 1 PUMP DAILY
     Route: 061
     Dates: start: 2011, end: 2011
  2. ANDROGEL [Suspect]
     Dosage: 6 PUMPS DAILY
     Route: 061
     Dates: start: 2012, end: 2012
  3. ANDROGEL [Suspect]
     Dosage: 9 PUMPS DAILY
     Route: 061
     Dates: start: 2012
  4. TESTIM [Concomitant]
     Indication: BLOOD TESTOSTERONE DECREASED
     Route: 061
     Dates: end: 2012

REACTIONS (4)
  - Blood testosterone decreased [Not Recovered/Not Resolved]
  - Intentional drug misuse [Recovered/Resolved]
  - Incorrect dose administered [Recovered/Resolved]
  - Incorrect dose administered [Not Recovered/Not Resolved]
